FAERS Safety Report 13976556 (Version 2)
Quarter: 2017Q4

REPORT INFORMATION
  Report Type: Spontaneous
  Country: US (occurrence: US)
  Receive Date: 20170914
  Receipt Date: 20171003
  Transmission Date: 20180321
  Serious: Yes (Other)
  Sender: FDA-Public Use
  Company Number: US-ASTELLAS-2017US035278

PATIENT
  Age: 82 Year
  Sex: Male

DRUGS (2)
  1. XTANDI [Suspect]
     Active Substance: ENZALUTAMIDE
     Dosage: UNK UNK, UNKNOWN FREQ.
     Route: 065
     Dates: start: 20170904
  2. XTANDI [Suspect]
     Active Substance: ENZALUTAMIDE
     Indication: PROSTATE CANCER
     Route: 048
     Dates: start: 20170808, end: 20170830

REACTIONS (6)
  - Malaise [Unknown]
  - Bone cancer [Unknown]
  - Bone pain [Unknown]
  - Fatigue [Unknown]
  - Urinary incontinence [Unknown]
  - Dyskinesia [Unknown]

NARRATIVE: CASE EVENT DATE: 20170829
